FAERS Safety Report 13722462 (Version 3)
Quarter: 2017Q3

REPORT INFORMATION
  Report Type: Spontaneous
  Country: US (occurrence: US)
  Receive Date: 20170706
  Receipt Date: 20170717
  Transmission Date: 20171127
  Serious: No
  Sender: FDA-Public Use
  Company Number: US-EMERGENT BIOSOLUTIONS-17BA00038SP

PATIENT
  Age: 10 Year
  Sex: Female
  Weight: 38.8 kg

DRUGS (3)
  1. MORPHINE [Concomitant]
     Active Substance: MORPHINE
     Indication: PAIN
     Dosage: 3.86 MG, Q3HR
     Route: 042
     Dates: start: 20170523, end: 20170524
  2. PENICILLIN G POTASSIUM. [Concomitant]
     Active Substance: PENICILLIN G POTASSIUM
     Indication: INFECTION
     Dosage: 2425000 UNIT, Q6H
     Route: 042
     Dates: start: 20170520, end: 20170530
  3. BAT [Suspect]
     Active Substance: EQUINE BOTULINUM NEUROTOXIN A/B/C/D/E/F/G IMMUNE FAB2
     Indication: BOTULISM
     Dosage: 117 ML, SINGLE
     Route: 042
     Dates: start: 20170520, end: 20170520

REACTIONS (3)
  - Pyrexia [Recovered/Resolved]
  - Tachycardia [Recovered/Resolved]
  - Hypothermia [Recovered/Resolved]

NARRATIVE: CASE EVENT DATE: 20170520
